FAERS Safety Report 13898554 (Version 2)
Quarter: 2017Q3

REPORT INFORMATION
  Report Type: Spontaneous
  Country: JP (occurrence: JP)
  Receive Date: 20170824
  Receipt Date: 20170912
  Transmission Date: 20171127
  Serious: Yes (Other)
  Sender: FDA-Public Use
  Company Number: JP-BAYER-2017-158246

PATIENT
  Age: 78 Year
  Sex: Male

DRUGS (5)
  1. OPALMON [Concomitant]
     Active Substance: LIMAPROST
  2. TERNELIN [Concomitant]
     Active Substance: TIZANIDINE
  3. EXFORGE [Concomitant]
     Active Substance: AMLODIPINE BESYLATE\VALSARTAN
  4. BAYASPIRIN 100 MG [Suspect]
     Active Substance: ASPIRIN
     Dosage: UNK, QD
     Route: 048
  5. MEVALOTIN [Concomitant]
     Active Substance: PRAVASTATIN SODIUM

REACTIONS (1)
  - Duodenal perforation [Unknown]

NARRATIVE: CASE EVENT DATE: 20170706
